FAERS Safety Report 7792239-2 (Version None)
Quarter: 2011Q4

REPORT INFORMATION
  Report Type: 
  Country: None (occurrence: None)
  Receive Date: 20111003
  Receipt Date: 20110921
  Transmission Date: 20120403
  Serious: No
  Sender: FDA-Public Use
  Company Number: CA-SANOFI-AVENTIS-2011SA051556

PATIENT
  Age: 63 Year
  Sex: Male

DRUGS (7)
  1. DRONEDARONE HCL [Suspect]
     Route: 048
     Dates: start: 20101014, end: 20110322
  2. WARFARIN SODIUM [Concomitant]
     Indication: ATRIAL FIBRILLATION
     Dates: start: 20100723, end: 20110711
  3. SPIRONOLACTONE [Concomitant]
     Indication: HYPERTENSION
     Dates: start: 20070101
  4. SPIRONOLACTONE [Concomitant]
     Dates: start: 20070101
  5. LASIX [Concomitant]
     Dates: start: 20091027, end: 20100101
  6. PERINDOPRIL ERBUMINE [Concomitant]
     Indication: HYPERTENSION
     Dates: start: 20070706
  7. LASIX [Concomitant]
     Indication: HYPERTENSION
     Dates: start: 20091027, end: 20100101

REACTIONS (1)
  - BLOOD CREATININE INCREASED [None]
